FAERS Safety Report 18491988 (Version 1)
Quarter: 2020Q4

REPORT INFORMATION
  Report Type: Spontaneous
  Country: JP (occurrence: JP)
  Receive Date: 20201111
  Receipt Date: 20201111
  Transmission Date: 20210114
  Serious: Yes (Other)
  Sender: FDA-Public Use
  Company Number: JP-PFIZER INC-2020443793

PATIENT

DRUGS (3)
  1. HYALEIN [Concomitant]
     Active Substance: HYALURONATE SODIUM
     Dosage: UNK
  2. IBRANCE [Suspect]
     Active Substance: PALBOCICLIB
     Dosage: UNK
  3. MIKELUNA [Concomitant]
     Dosage: UNK

REACTIONS (1)
  - Retinal oedema [Unknown]
